FAERS Safety Report 4525362-6 (Version None)
Quarter: 2004Q4

REPORT INFORMATION
  Report Type: 
  Country: None (occurrence: None)
  Receive Date: 20041112
  Receipt Date: 20040817
  Transmission Date: 20050328
  Serious: Yes (Other)
  Sender: FDA-Public Use
  Company Number: 200414630US

PATIENT
  Age: 71 Year
  Sex: Male

DRUGS (4)
  1. NILANDRON [Suspect]
     Indication: PROSTATE CANCER METASTATIC
     Dosage: 300 MG QD
     Dates: start: 20040501
  2. NILANDRON [Suspect]
     Indication: PROSTATE CANCER METASTATIC
     Dosage: 150 MG QD
     Dates: start: 20040601, end: 20040615
  3. HYDROCHLOROTHIAZIDE [Concomitant]
  4. LEUPRORELIN ACETATE (LUPRON) [Concomitant]

REACTIONS (3)
  - COUGH [None]
  - DYSPNOEA [None]
  - PNEUMONITIS [None]
